FAERS Safety Report 6554934-2 (Version None)
Quarter: 2010Q1

REPORT INFORMATION
  Report Type: 
  Country: None (occurrence: None)
  Receive Date: 20100126
  Receipt Date: 20100113
  Transmission Date: 20100710
  Serious: Yes (Other)
  Sender: FDA-Public Use
  Company Number: 2010AL000341

PATIENT
  Age: 52 Year
  Sex: Male

DRUGS (5)
  1. GABAPENTIN [Suspect]
     Indication: NEURALGIA
     Dosage: 900 MG; QD;
  2. AMITRIPTYLINE HCL [Concomitant]
  3. AMLODIPINE [Concomitant]
  4. RANITIDINE [Concomitant]
  5. CIALIS [Concomitant]

REACTIONS (1)
  - ERECTILE DYSFUNCTION [None]
